FAERS Safety Report 22355854 (Version 3)
Quarter: 2023Q2

REPORT INFORMATION
  Report Type: Report from Study
  Country: US (occurrence: US)
  Receive Date: 20230523
  Receipt Date: 20230629
  Transmission Date: 20230722
  Serious: Yes (Hospitalization, Other)
  Sender: FDA-Public Use
  Company Number: US-BoehringerIngelheim-2022-BI-210347

PATIENT
  Sex: Female

DRUGS (3)
  1. OFEV [Suspect]
     Active Substance: NINTEDANIB
     Indication: Idiopathic pulmonary fibrosis
     Dosage: LOT NO: 107559
     Route: 048
     Dates: start: 20221103
  2. OXYGEN [Suspect]
     Active Substance: OXYGEN
     Indication: Product used for unknown indication
  3. WARFARIN [Concomitant]
     Active Substance: WARFARIN
     Indication: Product used for unknown indication

REACTIONS (11)
  - Haematochezia [Unknown]
  - Blood potassium decreased [Unknown]
  - Skin cancer [Unknown]
  - Blood test abnormal [Unknown]
  - Arthralgia [Unknown]
  - Diarrhoea [Unknown]
  - Blister [Unknown]
  - Skin disorder [Unknown]
  - Dry throat [Unknown]
  - Fatigue [Unknown]
  - Paranasal sinus hypersecretion [Unknown]
